FAERS Safety Report 6074252-9 (Version None)
Quarter: 2009Q1

REPORT INFORMATION
  Report Type: 
  Country: None (occurrence: None)
  Receive Date: 20090211
  Receipt Date: 20090202
  Transmission Date: 20090719
  Serious: Yes (Hospitalization)
  Sender: FDA-Public Use
  Company Number: PHHY2009AR03598

PATIENT
  Sex: Female

DRUGS (1)
  1. DIOVAN HCT [Suspect]
     Indication: HYPERTENSION
     Dosage: 160 MG, QD
     Dates: start: 20081104

REACTIONS (7)
  - ARTHRALGIA [None]
  - BLOOD PRESSURE INCREASED [None]
  - CARDIAC PACEMAKER INSERTION [None]
  - CONDUCTION DISORDER [None]
  - PNEUMONIA [None]
  - PNEUMONITIS [None]
  - SYNCOPE [None]
